FAERS Safety Report 5647279-6 (Version None)
Quarter: 2008Q1

REPORT INFORMATION
  Report Type: 
  Country: None (occurrence: None)
  Receive Date: 20080303
  Receipt Date: 20080303
  Transmission Date: 20080703
  Serious: Yes (Other)
  Sender: FDA-Public Use
  Company Number: US-JNJFOC-20080205677

PATIENT
  Age: 13 Year
  Sex: Male
  Weight: 65.77 kg

DRUGS (2)
  1. TOPAMAX [Suspect]
     Dosage: 15 MG IN AM, 7.5 MG IN PM
     Route: 048
  2. TOPAMAX [Suspect]
     Indication: EPILEPSY
     Route: 048

REACTIONS (4)
  - HEADACHE [None]
  - PHARYNGEAL OEDEMA [None]
  - URTICARIA [None]
  - WHEEZING [None]
